FAERS Safety Report 5746971-2 (Version None)
Quarter: 2008Q2

REPORT INFORMATION
  Report Type: 
  Country: None (occurrence: None)
  Receive Date: 20080522
  Receipt Date: 20080512
  Transmission Date: 20081010
  Serious: Yes (Other)
  Sender: FDA-Public Use
  Company Number: US-PFIZER INC-2008042013

PATIENT
  Sex: Female

DRUGS (2)
  1. CHANTIX [Suspect]
  2. ALCOHOL [Suspect]

REACTIONS (2)
  - LOSS OF CONSCIOUSNESS [None]
  - SELF INJURIOUS BEHAVIOUR [None]
